FAERS Safety Report 4971778-3 (Version None)
Quarter: 2006Q2

REPORT INFORMATION
  Report Type: 
  Country: None (occurrence: None)
  Receive Date: 20060407
  Receipt Date: 20060310
  Transmission Date: 20061013
  Serious: Yes (Other)
  Sender: FDA-Public Use
  Company Number: SHI_0022_2006

PATIENT
  Age: 42 Year
  Sex: Female

DRUGS (6)
  1. CEDAX [Suspect]
     Indication: ABDOMINAL INFECTION
     Dosage: 400 MG QD PO
     Route: 048
     Dates: start: 20051229, end: 20060113
  2. CEDAX [Suspect]
     Indication: BACTERIAL INFECTION
     Dosage: 400 MG QD PO
     Route: 048
     Dates: start: 20051229, end: 20060113
  3. FLUVOXAMINE MALEATE [Concomitant]
  4. BRUFEN [Concomitant]
  5. NOVALGIN [Concomitant]
  6. PARACETAMOL [Concomitant]

REACTIONS (1)
  - OPTIC NEURITIS RETROBULBAR [None]
